FAERS Safety Report 4795911-1 (Version None)
Quarter: 2005Q4

REPORT INFORMATION
  Report Type: 
  Country: None (occurrence: None)
  Receive Date: 20051012
  Receipt Date: 20051003
  Transmission Date: 20060501
  Serious: Yes (Hospitalization)
  Sender: FDA-Public Use
  Company Number: GB-MERCK-0510GBR00020

PATIENT
  Age: 68 Year
  Sex: Female

DRUGS (5)
  1. SINGULAIR [Suspect]
     Indication: ASTHMA
     Route: 048
  2. PREDNISOLONE [Suspect]
     Indication: ASTHMA
     Route: 065
  3. THEOPHYLLINE [Suspect]
     Route: 065
  4. METFORMIN [Suspect]
     Route: 065
  5. FLUTICASONE PROPIONATE [Suspect]
     Route: 065

REACTIONS (1)
  - PERITONITIS BACTERIAL [None]
